FAERS Safety Report 20980340 (Version 3)
Quarter: 2022Q3

REPORT INFORMATION
  Report Type: Spontaneous
  Country: US (occurrence: US)
  Receive Date: 20220620
  Receipt Date: 20220707
  Transmission Date: 20221027
  Serious: Yes (Death, Life-Threatening, Hospitalization, Other)
  Sender: FDA-Public Use
  Company Number: US-AUROBINDO-AUR-APL-2022-021477

PATIENT
  Age: 34 Year
  Sex: Female
  Weight: 48.8 kg

DRUGS (9)
  1. DIPHENHYDRAMINE [Suspect]
     Active Substance: DIPHENHYDRAMINE
     Indication: Pain
     Dosage: UNK
     Route: 042
  2. DIPHENHYDRAMINE [Suspect]
     Active Substance: DIPHENHYDRAMINE
     Indication: Drug use disorder
  3. FLUCONAZOLE [Suspect]
     Active Substance: FLUCONAZOLE
     Indication: Pain
     Dosage: UNK
     Route: 065
  4. HYDROMORPHONE [Suspect]
     Active Substance: HYDROMORPHONE
     Indication: Pain
     Dosage: UNK
     Route: 048
  5. HYDROMORPHONE [Suspect]
     Active Substance: HYDROMORPHONE
     Indication: Drug use disorder
     Dosage: UNK
     Route: 048
  6. HYDROMORPHONE [Suspect]
     Active Substance: HYDROMORPHONE
     Indication: Drug use disorder
     Dosage: UNK
     Route: 042
  7. OXYCODONE [Suspect]
     Active Substance: OXYCODONE
     Indication: Pain
     Dosage: UNK
     Route: 048
  8. OXYCODONE [Suspect]
     Active Substance: OXYCODONE
     Indication: Drug use disorder
     Dosage: UNK
     Route: 042
  9. DOXYCYCLINE [Suspect]
     Active Substance: DOXYCYCLINE
     Indication: Pain
     Dosage: UNK
     Route: 065

REACTIONS (25)
  - Secondary amyloidosis [Fatal]
  - Drug abuse [Fatal]
  - Intentional product misuse [Fatal]
  - Stomatococcal infection [Fatal]
  - Wrong technique in product usage process [Fatal]
  - Lactobacillus infection [Fatal]
  - Pulseless electrical activity [Fatal]
  - Incorrect route of product administration [Fatal]
  - Myelosuppression [Fatal]
  - Candida infection [Fatal]
  - Immune system disorder [Fatal]
  - Hypothyroidism [Fatal]
  - Staphylococcal infection [Fatal]
  - Bone marrow failure [Fatal]
  - Granuloma [Fatal]
  - Escherichia infection [Fatal]
  - Lung disorder [Fatal]
  - Sepsis [Fatal]
  - Electrolyte imbalance [Fatal]
  - Myocarditis [Fatal]
  - Pseudomonas infection [Fatal]
  - Cardiac failure [Fatal]
  - Bacillus infection [Fatal]
  - Acute kidney injury [Fatal]
  - Drug ineffective [Unknown]
